FAERS Safety Report 16760118 (Version 3)
Quarter: 2019Q4

REPORT INFORMATION
  Report Type: Spontaneous
  Country: US (occurrence: US)
  Receive Date: 20190830
  Receipt Date: 20191008
  Transmission Date: 20200122
  Serious: Yes (Other)
  Sender: FDA-Public Use
  Company Number: US-BIOGEN-2019BI00777935

PATIENT
  Sex: Female

DRUGS (1)
  1. TYSABRI [Suspect]
     Active Substance: NATALIZUMAB
     Indication: MULTIPLE SCLEROSIS
     Route: 065
     Dates: start: 20160809, end: 20161024

REACTIONS (25)
  - Memory impairment [Unknown]
  - Gingival disorder [Unknown]
  - Mouth haemorrhage [Unknown]
  - Metamorphopsia [Unknown]
  - Poor quality sleep [Unknown]
  - Multiple sclerosis [Unknown]
  - Loss of control of legs [Unknown]
  - Hypertension [Unknown]
  - Bipolar disorder [Unknown]
  - Dysarthria [Unknown]
  - Central nervous system lesion [Unknown]
  - Hypoacusis [Unknown]
  - Choking [Unknown]
  - Malaise [Unknown]
  - Fall [Recovered/Resolved]
  - Migraine [Unknown]
  - Dyspnoea [Unknown]
  - Generalised tonic-clonic seizure [Recovered/Resolved]
  - Scratch [Unknown]
  - Dehydration [Unknown]
  - Infection [Unknown]
  - Drug ineffective [Unknown]
  - Fear [Unknown]
  - Pain [Unknown]
  - Vertigo [Unknown]

NARRATIVE: CASE EVENT DATE: 2018
